FAERS Safety Report 10166449 (Version 1)
Quarter: 2014Q2

REPORT INFORMATION
  Report Type: Spontaneous
  Country: NO (occurrence: NO)
  Receive Date: 20140512
  Receipt Date: 20140512
  Transmission Date: 20141212
  Serious: Yes (Hospitalization)
  Sender: FDA-Public Use
  Company Number: NO-SA-2014SA057516

PATIENT
  Sex: Male

DRUGS (14)
  1. THYMOGLOBULIN [Suspect]
     Indication: TRANSPLANT REJECTION
     Dosage: NOT REPORTED
     Route: 065
  2. PREDNISOLONE [Suspect]
     Indication: DIFFUSE LARGE B-CELL LYMPHOMA
     Dosage: NOT REPORTED
     Route: 065
  3. METHYLPREDNISOLONE [Suspect]
     Indication: TRANSPLANT REJECTION
     Dosage: NOT REPORTED
     Route: 042
  4. DOXORUBICIN [Suspect]
     Indication: DIFFUSE LARGE B-CELL LYMPHOMA
     Dosage: NOT REPORTED
     Route: 065
  5. TACROLIMUS [Suspect]
     Indication: PRODUCT USED FOR UNKNOWN INDICATION
     Dosage: NOT REPORTED
     Route: 065
  6. MYCOPHENOLATE MOFETIL [Suspect]
     Indication: PRODUCT USED FOR UNKNOWN INDICATION
     Dosage: NOT REPORTED
     Route: 065
  7. RITUXIMAB [Suspect]
     Indication: DIFFUSE LARGE B-CELL LYMPHOMA
     Dosage: NOT REPORTED
     Route: 065
  8. CYCLOPHOSPHAMIDE [Suspect]
     Indication: DIFFUSE LARGE B-CELL LYMPHOMA
     Dosage: NOT REPORTED
     Route: 065
  9. VINCRISTINE SULFATE [Suspect]
     Indication: DIFFUSE LARGE B-CELL LYMPHOMA
     Dosage: NOT REPORTED
     Route: 065
  10. INSULIN [Concomitant]
     Indication: TYPE 1 DIABETES MELLITUS
     Dosage: NOT REPORTED
  11. ANTIHYPERTENSIVES [Concomitant]
     Indication: HYPERTENSION
     Dosage: NOT REPORTED
  12. ASPIRIN [Concomitant]
     Indication: PRODUCT USED FOR UNKNOWN INDICATION
     Dosage: NOT REPORTED
  13. SULFAMETHOXAZOLE/TRIMETHOPRIM [Concomitant]
     Indication: PROPHYLAXIS
     Dosage: NOT REPORTED
  14. EMTRICITABINE [Concomitant]
     Indication: HEPATITIS B
     Dosage: NOT REPORTED

REACTIONS (2)
  - Strongyloidiasis [Recovered/Resolved]
  - Infection reactivation [Recovered/Resolved]
